FAERS Safety Report 4870719-7 (Version None)
Quarter: 2006Q1

REPORT INFORMATION
  Report Type: 
  Country: None (occurrence: None)
  Receive Date: 20060103
  Receipt Date: 20050617
  Transmission Date: 20060701
  Serious: Yes (Disabling)
  Sender: FDA-Public Use
  Company Number: DE-GLAXOSMITHKLINE-D0046883A

PATIENT
  Age: 28 Year
  Sex: Female

DRUGS (2)
  1. ADVAIR DISKUS 100/50 [Suspect]
     Indication: ASTHMA
     Dosage: 1PUFF PER DAY
     Route: 055
     Dates: start: 20041001, end: 20050213
  2. L -THYROXINE [Concomitant]
     Route: 065

REACTIONS (6)
  - GINGIVITIS [None]
  - GINGIVITIS ULCERATIVE [None]
  - MUCOSAL INFLAMMATION [None]
  - NECROTISING ULCERATIVE GINGIVOSTOMATITIS [None]
  - STOMATITIS [None]
  - TOOTH LOSS [None]
